FAERS Safety Report 14206382 (Version 1)
Quarter: 2017Q4

REPORT INFORMATION
  Report Type: Spontaneous
  Country: US (occurrence: US)
  Receive Date: 20171120
  Receipt Date: 20171120
  Transmission Date: 20180321
  Serious: No
  Sender: FDA-Public Use
  Company Number: US-ELI_LILLY_AND_COMPANY-US201711004675

PATIENT
  Sex: Male

DRUGS (4)
  1. NOVOLOG [Concomitant]
     Active Substance: INSULIN ASPART
     Indication: INSULIN RESISTANT DIABETES
     Dosage: 60 U, PRN
  2. LEVEMIR [Concomitant]
     Active Substance: INSULIN DETEMIR
     Indication: INSULIN RESISTANT DIABETES
     Dosage: 75 U, EACH EVENING
  3. METFORMIN [Concomitant]
     Active Substance: METFORMIN HYDROCHLORIDE
     Indication: INSULIN RESISTANT DIABETES
     Dosage: UNK, BID
  4. TRULICITY [Suspect]
     Active Substance: DULAGLUTIDE
     Indication: TYPE 2 DIABETES MELLITUS
     Dosage: 0.75 MG, UNKNOWN
     Route: 065
     Dates: start: 201705

REACTIONS (1)
  - Underdose [Unknown]
